FAERS Safety Report 4369370-7 (Version None)
Quarter: 2004Q2

REPORT INFORMATION
  Report Type: 
  Country: None (occurrence: None)
  Receive Date: 20040528
  Receipt Date: 20040518
  Transmission Date: 20050107
  Serious: Yes (Other)
  Sender: FDA-Public Use
  Company Number: US-JNJFOC-20040504371

PATIENT
  Age: 25 Year
  Sex: Male

DRUGS (8)
  1. DURAGESIC [Suspect]
     Indication: PAIN
     Dosage: SEE IMAGE
     Dates: start: 20040101, end: 20040510
  2. DURAGESIC [Suspect]
     Indication: PAIN
     Dosage: SEE IMAGE
     Dates: start: 20040510, end: 20040512
  3. TRAZADONE (TRAZODONE) [Concomitant]
  4. TEGRETOL [Concomitant]
  5. BEXTRA [Concomitant]
  6. GABITRIL [Concomitant]
  7. SOMA [Concomitant]
  8. LEXIPRO (SSRI) [Concomitant]

REACTIONS (4)
  - DIARRHOEA [None]
  - LOSS OF CONSCIOUSNESS [None]
  - RESPIRATORY RATE DECREASED [None]
  - VOMITING [None]
